FAERS Safety Report 13649413 (Version 2)
Quarter: 2017Q3

REPORT INFORMATION
  Report Type: Spontaneous
  Country: JP (occurrence: JP)
  Receive Date: 20170613
  Receipt Date: 20170710
  Transmission Date: 20171127
  Serious: No
  Sender: FDA-Public Use
  Company Number: PHHY2017JP085982

PATIENT
  Sex: Female
  Weight: 3.57 kg

DRUGS (4)
  1. AFINITOR [Suspect]
     Active Substance: EVEROLIMUS
     Dosage: UNK UNK, QD
     Route: 064
  2. AFINITOR [Suspect]
     Active Substance: EVEROLIMUS
     Dosage: MATERNAL DOSE: 5 MG/DAY
     Route: 064
  3. AFINITOR [Suspect]
     Active Substance: EVEROLIMUS
     Dosage: MATERNAL DOSE: 2.5 MG/DAY
     Route: 064
  4. AFINITOR [Suspect]
     Active Substance: EVEROLIMUS
     Indication: FOETAL EXPOSURE DURING PREGNANCY
     Dosage: MATERNAL DOSE: 10 MG/DAY
     Route: 064
     Dates: start: 201310

REACTIONS (1)
  - Foetal exposure during pregnancy [Unknown]

NARRATIVE: CASE EVENT DATE: 20160520
